FAERS Safety Report 12979808 (Version 1)
Quarter: 2016Q4

REPORT INFORMATION
  Report Type: Spontaneous
  Country: US (occurrence: US)
  Receive Date: 20161128
  Receipt Date: 20161128
  Transmission Date: 20170207
  Serious: Yes (Other)
  Sender: FDA-Public Use
  Company Number: US-MUNDIPHARMA DS AND PHARMACOVIGILANCE-USA-2016-0134851

PATIENT
  Sex: Female

DRUGS (2)
  1. OXYCODONE/APAP                     /01601701/ [Concomitant]
     Active Substance: ACETAMINOPHEN\OXYCODONE HYDROCHLORIDE
     Indication: BREAKTHROUGH PAIN
     Dosage: 1 TABLET 7.5/325 MG, PRN
     Route: 048
  2. BUTRANS [Suspect]
     Active Substance: BUPRENORPHINE
     Indication: PAIN
     Dosage: 10 MCG/HR, WEEKLY
     Route: 062
     Dates: end: 20161115

REACTIONS (3)
  - Inadequate analgesia [Not Recovered/Not Resolved]
  - Drug screen negative [Not Recovered/Not Resolved]
  - Arthropathy [Not Recovered/Not Resolved]
